FAERS Safety Report 4926751-8 (Version None)
Quarter: 2006Q1

REPORT INFORMATION
  Report Type: 
  Country: None (occurrence: None)
  Receive Date: 20060228
  Receipt Date: 20050609
  Transmission Date: 20060701
  Serious: No
  Sender: FDA-Public Use
  Company Number: US-GLAXOSMITHKLINE-A0562035A

PATIENT
  Age: 55 Year
  Sex: Male

DRUGS (5)
  1. LAMICTAL [Suspect]
     Route: 048
     Dates: start: 20050401
  2. PRAVACHOL [Concomitant]
  3. SYNTHROID [Concomitant]
  4. NORVASC [Concomitant]
  5. TOPAMAX [Concomitant]

REACTIONS (1)
  - ALOPECIA [None]
